FAERS Safety Report 10878290 (Version 4)
Quarter: 2015Q4

REPORT INFORMATION
  Report Type: Spontaneous
  Country: US (occurrence: US)
  Receive Date: 20150302
  Receipt Date: 20151124
  Transmission Date: 20160304
  Serious: Yes (Hospitalization, Other)
  Sender: FDA-Public Use
  Company Number: US-SA-2015SA023847

PATIENT
  Age: 54 Year
  Sex: Male
  Weight: 66.22 kg

DRUGS (8)
  1. AUBAGIO [Suspect]
     Active Substance: TERIFLUNOMIDE
     Indication: MULTIPLE SCLEROSIS
     Route: 048
     Dates: end: 2015
  2. RANITIDINE [Concomitant]
     Active Substance: RANITIDINE\RANITIDINE HYDROCHLORIDE
     Dosage: STRENGTH: 150 MG
  3. DILANTIN [Interacting]
     Active Substance: PHENYTOIN
     Indication: SEIZURE
     Dosage: STRENGTH: 100 MG
  4. LORAZEPAM. [Concomitant]
     Active Substance: LORAZEPAM
     Dosage: STRENGTH: 2 MG
     Dates: start: 20130730
  5. CYMBALTA [Concomitant]
     Active Substance: DULOXETINE HYDROCHLORIDE
     Indication: DEPRESSION
     Dosage: STRENGTH: 60 MG
  6. AUBAGIO [Interacting]
     Active Substance: TERIFLUNOMIDE
     Indication: MULTIPLE SCLEROSIS
     Route: 065
     Dates: start: 2015
  7. HYDROCODONE BITARTRATE/PARACETAMOL [Concomitant]
  8. ZANTAC [Concomitant]
     Active Substance: RANITIDINE HYDROCHLORIDE
     Indication: ANXIETY
     Dosage: 150 TWICE A DAY

REACTIONS (3)
  - Asthenia [Recovered/Resolved]
  - Drug interaction [Unknown]
  - Seizure [Not Recovered/Not Resolved]

NARRATIVE: CASE EVENT DATE: 2015
